FAERS Safety Report 24839334 (Version 1)
Quarter: 2025Q1

REPORT INFORMATION
  Report Type: Spontaneous
  Country: US (occurrence: US)
  Receive Date: 20250114
  Receipt Date: 20250114
  Transmission Date: 20250409
  Serious: No
  Sender: ALKEM
  Company Number: US-ALKEM LABORATORIES LIMITED-US-ALKEM-2024-15745

PATIENT
  Sex: Female

DRUGS (1)
  1. CAPECITABINE [Suspect]
     Active Substance: CAPECITABINE
     Indication: Colon cancer
     Dosage: 500 MILLIGRAM, BID
     Route: 065
     Dates: start: 20240617, end: 20240621

REACTIONS (9)
  - Arthralgia [Recovering/Resolving]
  - Confusional state [Recovering/Resolving]
  - Muscle twitching [Recovering/Resolving]
  - Diarrhoea [Recovering/Resolving]
  - Mental disorder [Recovering/Resolving]
  - Fall [Recovering/Resolving]
  - Face injury [Recovering/Resolving]
  - Limb injury [Recovering/Resolving]
  - Head injury [Recovering/Resolving]
